FAERS Safety Report 20455860 (Version 1)
Quarter: 2022Q1

REPORT INFORMATION
  Report Type: Spontaneous
  Country: US (occurrence: US)
  Receive Date: 20220210
  Receipt Date: 20220210
  Transmission Date: 20220423
  Serious: No
  Sender: FDA-Public Use
  Company Number: US-PFIZER INC-202200058263

PATIENT
  Age: 77 Year
  Sex: Female

DRUGS (1)
  1. XELJANZ [Suspect]
     Active Substance: TOFACITINIB CITRATE
     Indication: Rheumatoid arthritis
     Dosage: 10 MG, DAILY (TWO 5 MG TABS DAILY AND NOT 5 MG TWICE DAILY)
     Route: 048
     Dates: start: 202201

REACTIONS (2)
  - Drug ineffective [Unknown]
  - Off label use [Unknown]
